FAERS Safety Report 7039788-2 (Version None)
Quarter: 2010Q4

REPORT INFORMATION
  Report Type: 
  Country: None (occurrence: None)
  Receive Date: 20101012
  Receipt Date: 20101001
  Transmission Date: 20110411
  Serious: Yes (Hospitalization, Disabling)
  Sender: FDA-Public Use
  Company Number: CA-MERCK-1010USA00385

PATIENT
  Age: 57 Year
  Sex: Female
  Weight: 46 kg

DRUGS (3)
  1. FOSAMAX [Suspect]
     Route: 048
  2. ACTONEL [Suspect]
     Route: 048
  3. CALTRATE 600 PLUS VITAMIN D [Concomitant]
     Route: 065

REACTIONS (6)
  - ASTHENIA [None]
  - COORDINATION ABNORMAL [None]
  - FALL [None]
  - FEMUR FRACTURE [None]
  - MUSCULAR WEAKNESS [None]
  - STRESS FRACTURE [None]
